FAERS Safety Report 14381649 (Version 2)
Quarter: 2018Q2

REPORT INFORMATION
  Report Type: Report from Study
  Country: US (occurrence: US)
  Receive Date: 20180112
  Receipt Date: 20180516
  Transmission Date: 20180711
  Serious: No
  Sender: FDA-Public Use
  Company Number: PHEH2018US001351

PATIENT
  Sex: Male

DRUGS (1)
  1. COSENTYX [Suspect]
     Active Substance: SECUKINUMAB
     Indication: PRODUCT USED FOR UNKNOWN INDICATION
     Dosage: 300 MG, QMO
     Route: 058

REACTIONS (7)
  - Depression [Unknown]
  - Arthritis [Unknown]
  - Arthropathy [Unknown]
  - Inappropriate schedule of drug administration [Unknown]
  - Spinal disorder [Unknown]
  - Injection site haemorrhage [Unknown]
  - Product storage error [Unknown]
